FAERS Safety Report 6749434-0 (Version None)
Quarter: 2010Q2

REPORT INFORMATION
  Report Type: 
  Country: None (occurrence: None)
  Receive Date: 20100527
  Receipt Date: 20100520
  Transmission Date: 20101027
  Serious: Yes (Other)
  Sender: FDA-Public Use
  Company Number: 009730

PATIENT
  Sex: Female
  Weight: 55 kg

DRUGS (3)
  1. KEPPRA [Suspect]
     Dosage: (1 G ORAL), (1000 MG ORAL)
     Route: 048
     Dates: start: 20090501, end: 20091231
  2. KEPPRA [Suspect]
     Dosage: (1 G ORAL), (1000 MG ORAL)
     Route: 048
     Dates: start: 20100325
  3. LAMICTAL [Suspect]
     Dosage: (100 MG ) ORAL), (175 MG ORAL)
     Route: 048
     Dates: start: 20091231

REACTIONS (2)
  - DRUG EXPOSURE DURING PREGNANCY [None]
  - PREGNANCY [None]
